FAERS Safety Report 7250623-X (Version None)
Quarter: 2011Q1

REPORT INFORMATION
  Report Type: 
  Country: None (occurrence: None)
  Receive Date: 20110128
  Receipt Date: 20110117
  Transmission Date: 20110831
  Serious: Yes (Other)
  Sender: FDA-Public Use
  Company Number: PHHY2010CN86342

PATIENT
  Age: 5 Year
  Sex: Male
  Weight: 19 kg

DRUGS (1)
  1. TACROLIMUS [Suspect]
     Dosage: UNK

REACTIONS (3)
  - VENOUS STENOSIS [None]
  - HYPERTENSIVE ENCEPHALOPATHY [None]
  - ASCITES [None]
